FAERS Safety Report 9537876 (Version 1)
Quarter: 2013Q3

REPORT INFORMATION
  Report Type: Spontaneous
  Country: US (occurrence: US)
  Receive Date: 20130919
  Receipt Date: 20130919
  Transmission Date: 20140515
  Serious: Yes (Other)
  Sender: FDA-Public Use
  Company Number: CHPA2013US014172

PATIENT
  Age: 61 Year
  Sex: Male

DRUGS (1)
  1. ASCRIPTIN BUFFERED REG STRENGTH TABLETS [Suspect]
     Indication: ARTHRITIS
     Dosage: 1-2 DF, Q4H
     Route: 048

REACTIONS (3)
  - Nephrolithiasis [Not Recovered/Not Resolved]
  - Underdose [Unknown]
  - Incorrect drug administration duration [Unknown]
